FAERS Safety Report 4269758-9 (Version None)
Quarter: 2004Q1

REPORT INFORMATION
  Report Type: 
  Country: None (occurrence: None)
  Receive Date: 20040113
  Receipt Date: 20031014
  Transmission Date: 20041129
  Serious: Yes (Death, Life-Threatening, Hospitalization, Other)
  Sender: FDA-Public Use
  Company Number: WAES 0310ESP00015

PATIENT
  Age: 89 Year
  Sex: Female

DRUGS (2)
  1. CAPTOPRIL [Concomitant]
     Dates: end: 20030701
  2. HYZAAR [Suspect]
     Route: 048
     Dates: start: 20030701, end: 20030923

REACTIONS (17)
  - ANAEMIA [None]
  - ARRHYTHMIA [None]
  - ARTHRALGIA [None]
  - ASTHENIA [None]
  - ATRIOVENTRICULAR BLOCK [None]
  - BRADYCARDIA [None]
  - GENERAL PHYSICAL HEALTH DETERIORATION [None]
  - GENERALISED ERYTHEMA [None]
  - HEPATOCELLULAR DAMAGE [None]
  - JOINT SWELLING [None]
  - PNEUMONIA [None]
  - PRURITUS [None]
  - RED BLOOD CELL SEDIMENTATION RATE INCREASED [None]
  - RENAL DISORDER [None]
  - SERUM FERRITIN INCREASED [None]
  - URTICARIA [None]
  - VASCULITIS [None]
